FAERS Safety Report 8597645-4 (Version None)
Quarter: 2012Q3

REPORT INFORMATION
  Report Type: 
  Country: None (occurrence: None)
  Receive Date: 20120816
  Receipt Date: 20120809
  Transmission Date: 20120928
  Serious: Yes (Other)
  Sender: FDA-Public Use
  Company Number: US-PFIZER INC-2012195275

PATIENT

DRUGS (3)
  1. ZOLOFT [Suspect]
     Dosage: UNK
     Dates: start: 20030915
  2. NEURONTIN [Suspect]
     Dosage: UNK
     Dates: start: 20030915
  3. PROCARDIA [Suspect]
     Dosage: UNK
     Dates: start: 20030915

REACTIONS (1)
  - COGNITIVE DISORDER [None]
